FAERS Safety Report 15921493 (Version 1)
Quarter: 2019Q1

REPORT INFORMATION
  Report Type: Spontaneous
  Country: US (occurrence: US)
  Receive Date: 20190115
  Receipt Date: 20190115
  Transmission Date: 20190417
  Serious: Yes (Hospitalization)
  Sender: FDA-Public Use
  Company Number: None

PATIENT
  Age: 74 Year
  Sex: Female
  Weight: 63.5 kg

DRUGS (1)
  1. PROLIA [Suspect]
     Active Substance: DENOSUMAB
     Indication: OSTEOPOROSIS
     Dosage: 60 MG 6 MONTHS SUBCUTANEOUS
     Route: 058

REACTIONS (5)
  - Atrial fibrillation [None]
  - Myalgia [None]
  - Back pain [None]
  - Arthralgia [None]
  - Kidney infection [None]

NARRATIVE: CASE EVENT DATE: 20180425
